FAERS Safety Report 7818981-2 (Version None)
Quarter: 2011Q4

REPORT INFORMATION
  Report Type: 
  Country: None (occurrence: None)
  Receive Date: 20111012
  Receipt Date: 20111004
  Transmission Date: 20120403
  Serious: Yes (Other)
  Sender: FDA-Public Use
  Company Number: AUR-APL-2011-05349

PATIENT
  Age: 26 Year
  Sex: Female

DRUGS (4)
  1. FOLIC ACID [Concomitant]
  2. GABAPENTIN [Suspect]
     Indication: PRODUCT USED FOR UNKNOWN INDICATION
  3. SERTRALINE HYDROCHLORIDE [Suspect]
     Indication: MENTAL DISORDER
  4. AMITRIPTYLINE HCL [Suspect]
     Indication: MENTAL DISORDER
     Dosage: (125 MG)

REACTIONS (3)
  - PREGNANCY [None]
  - MATERNAL EXPOSURE DURING PREGNANCY [None]
  - UNEVALUABLE EVENT [None]
